FAERS Safety Report 8016912-6 (Version None)
Quarter: 2012Q1

REPORT INFORMATION
  Report Type: 
  Country: None (occurrence: None)
  Receive Date: 20120102
  Receipt Date: 20111221
  Transmission Date: 20120608
  Serious: Yes (Hospitalization, Other)
  Sender: FDA-Public Use
  Company Number: PHHY2011FR111798

PATIENT
  Sex: Female

DRUGS (5)
  1. ACETAMINOPHEN [Concomitant]
  2. PRAVIGARD PAC (COPACKAGED) [Concomitant]
     Dosage: 1 DF, PER DAY
     Route: 048
  3. RASILEZ HCT [Suspect]
     Indication: HYPERTENSION
     Dosage: 1 DF, QD
     Route: 048
     Dates: start: 20110701, end: 20111012
  4. ZOLEDRONOC ACID [Concomitant]
     Dosage: 1 DF, PER YEAR
     Route: 042
  5. AMIODARONE HCL [Concomitant]
     Dosage: 5 DF, PER WEEK
     Route: 048

REACTIONS (6)
  - HYPONATRAEMIA [None]
  - GENERAL PHYSICAL HEALTH DETERIORATION [None]
  - SOMNOLENCE [None]
  - NAUSEA [None]
  - VOMITING [None]
  - MUSCULAR WEAKNESS [None]
